FAERS Safety Report 18438078 (Version 4)
Quarter: 2021Q4

REPORT INFORMATION
  Report Type: Report from Study
  Country: None (occurrence: US)
  Receive Date: 20201029
  Receipt Date: 20211127
  Transmission Date: 20220304
  Serious: No
  Sender: FDA-Public Use
  Company Number: US-AKCEA THERAPEUTICS-2020IS001453

PATIENT
  Age: 47 Year
  Sex: Male

DRUGS (2)
  1. TEGSEDI [Suspect]
     Active Substance: INOTERSEN SODIUM
     Indication: Hereditary neuropathic amyloidosis
     Route: 058
     Dates: start: 20181220
  2. DEVICE [Suspect]
     Active Substance: DEVICE

REACTIONS (11)
  - Platelet count decreased [Not Recovered/Not Resolved]
  - Glucose urine present [Unknown]
  - Alanine aminotransferase abnormal [Unknown]
  - Specific gravity urine abnormal [Unknown]
  - Urinary sediment present [Unknown]
  - Crystal urine present [Unknown]
  - Protein urine present [Unknown]
  - Tremor [Unknown]
  - Aspartate aminotransferase abnormal [Unknown]
  - Urine abnormality [Unknown]
  - Urine protein/creatinine ratio abnormal [Unknown]

NARRATIVE: CASE EVENT DATE: 20210830
